FAERS Safety Report 6608497-3 (Version None)
Quarter: 2010Q1

REPORT INFORMATION
  Report Type: 
  Country: None (occurrence: None)
  Receive Date: 20100301
  Receipt Date: 20100219
  Transmission Date: 20100710
  Serious: Yes (Other)
  Sender: FDA-Public Use
  Company Number: GB-MERCK-1002GBR00018

PATIENT
  Age: 45 Year
  Sex: Male
  Weight: 78 kg

DRUGS (17)
  1. RALTEGRAVIR POTASSIUM [Suspect]
     Indication: HIV INFECTION
     Route: 048
  2. AZITHROMYCIN [Concomitant]
     Route: 065
  3. CALCIUM (UNSPECIFIED) [Concomitant]
     Route: 065
  4. CALCIUM CITRATE AND CHOLECALCIFEROL [Concomitant]
     Route: 065
  5. DAPSONE [Concomitant]
     Route: 065
  6. DARUNAVIR [Suspect]
     Indication: HIV INFECTION
     Route: 048
     Dates: start: 20080723
  7. DOCUSATE SODIUM [Concomitant]
     Route: 065
  8. DOMPERIDONE [Concomitant]
     Route: 065
  9. ETRAVIRINE [Suspect]
     Indication: HIV INFECTION
     Route: 048
  10. FUROSEMIDE [Concomitant]
     Route: 065
  11. IBUPROFEN [Concomitant]
     Route: 065
  12. MORPHINE SULFATE [Concomitant]
     Route: 065
  13. PREGABALIN [Concomitant]
     Route: 065
  14. PYRIMETHAMINE [Concomitant]
     Route: 065
  15. RITONAVIR [Suspect]
     Indication: HIV INFECTION
     Route: 065
  16. TESTOSTERONE [Concomitant]
     Route: 065
  17. VALGANCICLOVIR HYDROCHLORIDE [Concomitant]
     Route: 065

REACTIONS (2)
  - BLOOD CHOLESTEROL INCREASED [None]
  - WEIGHT INCREASED [None]
